FAERS Safety Report 19759173 (Version 1)
Quarter: 2021Q3

REPORT INFORMATION
  Report Type: Spontaneous
  Country: US (occurrence: US)
  Receive Date: 20210827
  Receipt Date: 20210827
  Transmission Date: 20211014
  Serious: Yes (Disabling)
  Sender: FDA-Public Use
  Company Number: US-EDGEWELL PERSONAL CARE, LLC-2115745

PATIENT
  Age: 53 Year
  Sex: Female

DRUGS (2)
  1. BANANA BOAT ULTRA SPORT SUNSCREEN BROAD SPECTRUM SPF 30 [Suspect]
     Active Substance: AVOBENZONE\HOMOSALATE\OCTISALATE\OCTOCRYLENE
     Indication: PROPHYLAXIS AGAINST SOLAR RADIATION
     Route: 061
     Dates: start: 20210703, end: 20210703
  2. SYNTHROID [Concomitant]
     Active Substance: LEVOTHYROXINE SODIUM

REACTIONS (8)
  - Loss of personal independence in daily activities [Unknown]
  - Hypoaesthesia [Unknown]
  - Application site pruritus [Unknown]
  - Application site burn [Unknown]
  - Insomnia [Unknown]
  - Thermal burn [Unknown]
  - Skin exfoliation [Unknown]
  - Scab [Unknown]

NARRATIVE: CASE EVENT DATE: 20210703
